FAERS Safety Report 4617784-X (Version None)
Quarter: 2005Q1

REPORT INFORMATION
  Report Type: 
  Country: None (occurrence: None)
  Receive Date: 20050324
  Receipt Date: 20050131
  Transmission Date: 20050727
  Serious: Yes (Disabling)
  Sender: FDA-Public Use
  Company Number: PHBS2005CA01725

PATIENT
  Age: 55 Year
  Sex: Female

DRUGS (5)
  1. LIORESAL [Suspect]
     Dosage: 20 MG/DAY
     Route: 048
     Dates: start: 20041216, end: 20050128
  2. HYDROCHLOROTHIAZIDE [Concomitant]
     Dosage: 25 MG, QD
     Route: 065
  3. DIAZEPAM [Concomitant]
     Dosage: 5 MG, TID
     Route: 048
     Dates: start: 20041202
  4. DIDROCAL [Concomitant]
  5. CALCIUM GLUCONATE [Concomitant]

REACTIONS (2)
  - HYPERSENSITIVITY [None]
  - MUSCULAR WEAKNESS [None]
